FAERS Safety Report 19598136 (Version 1)
Quarter: 2021Q3

REPORT INFORMATION
  Report Type: Report from Study
  Country: CN (occurrence: CN)
  Receive Date: 20210723
  Receipt Date: 20210723
  Transmission Date: 20211014
  Serious: Yes (Death, Other)
  Sender: FDA-Public Use
  Company Number: CN-SUN PHARMACEUTICAL INDUSTRIES LTD-2021R1-305102

PATIENT
  Age: 72 Year
  Sex: Female

DRUGS (2)
  1. CAMRELIZUMAB [Suspect]
     Active Substance: CAMRELIZUMAB
     Indication: LUNG ADENOCARCINOMA
     Dosage: 200 MILLIGRAM, UNK
     Route: 065
  2. DECITABINE. [Suspect]
     Active Substance: DECITABINE
     Indication: LUNG ADENOCARCINOMA
     Dosage: 10 MILLIGRAM, DAILY
     Route: 065

REACTIONS (3)
  - Disease progression [Unknown]
  - Vomiting [Unknown]
  - Fatigue [Unknown]
